FAERS Safety Report 17084478 (Version 3)
Quarter: 2020Q1

REPORT INFORMATION
  Report Type: Spontaneous
  Country: JP (occurrence: JP)
  Receive Date: 20191127
  Receipt Date: 20200107
  Transmission Date: 20200409
  Serious: Yes (Hospitalization, Other)
  Sender: FDA-Public Use
  Company Number: JP-GLAXOSMITHKLINE-JP2019JPN212247

PATIENT
  Sex: Male

DRUGS (1)
  1. AVOLVE [Suspect]
     Active Substance: DUTASTERIDE
     Indication: BENIGN PROSTATIC HYPERPLASIA
     Dosage: 0.5 MG, QD
     Route: 048

REACTIONS (2)
  - Parkinson^s disease [Unknown]
  - Intercepted product prescribing error [Unknown]
